FAERS Safety Report 21931316 (Version 1)
Quarter: 2023Q1

REPORT INFORMATION
  Report Type: Report from Study
  Country: UA (occurrence: UA)
  Receive Date: 20230131
  Receipt Date: 20230131
  Transmission Date: 20230418
  Serious: Yes (Other)
  Sender: FDA-Public Use
  Company Number: UA-TAKEDA-2023TUS009809

PATIENT
  Age: 69 Year
  Sex: Female

DRUGS (2)
  1. VEDOLIZUMAB [Suspect]
     Active Substance: VEDOLIZUMAB
     Indication: Colitis ulcerative
     Dosage: 300 MILLIGRAM
     Route: 042
     Dates: start: 20221121
  2. VEDOLIZUMAB [Suspect]
     Active Substance: VEDOLIZUMAB
     Dosage: 300 MILLIGRAM, Q4WEEKS
     Route: 042

REACTIONS (8)
  - Haematochezia [Unknown]
  - Diarrhoea [Unknown]
  - Asthenia [Unknown]
  - Anaemia [Unknown]
  - Hypoproteinaemia [Unknown]
  - Weight decreased [Unknown]
  - Flatulence [Unknown]
  - Off label use [Unknown]
